FAERS Safety Report 16339981 (Version 1)
Quarter: 2019Q2

REPORT INFORMATION
  Report Type: Report from Study
  Country: DE (occurrence: DE)
  Receive Date: 20190521
  Receipt Date: 20190521
  Transmission Date: 20190711
  Serious: Yes (Hospitalization, Other)
  Sender: FDA-Public Use
  Company Number: DE-INCYTE CORPORATION-2018IN009428

PATIENT

DRUGS (10)
  1. JODETTEN [Concomitant]
     Indication: PRODUCT USED FOR UNKNOWN INDICATION
     Dosage: UNK
     Route: 065
  2. INCB018424 [Suspect]
     Active Substance: RUXOLITINIB
     Indication: PRIMARY MYELOFIBROSIS
     Dosage: 20 MG, QD
     Route: 048
     Dates: start: 20171106
  3. APIXABAN [Concomitant]
     Active Substance: APIXABAN
     Indication: ATRIAL FIBRILLATION
     Dosage: UNK
     Route: 065
  4. BISOPROLOL [Concomitant]
     Active Substance: BISOPROLOL
     Indication: PRODUCT USED FOR UNKNOWN INDICATION
     Dosage: 10 MG, QD
     Route: 065
  5. INCB018424 [Suspect]
     Active Substance: RUXOLITINIB
     Dosage: 20 MG, QD
     Route: 048
     Dates: start: 20181018, end: 20181228
  6. HYDROCHOROTHIAZIDE [Concomitant]
     Active Substance: HYDROCHLOROTHIAZIDE
     Indication: PRODUCT USED FOR UNKNOWN INDICATION
     Dosage: 25 MG, QD
     Route: 065
  7. EXJADE [Concomitant]
     Active Substance: DEFERASIROX
     Indication: IRON OVERLOAD
     Dosage: 720 MG, QD
     Route: 065
     Dates: start: 20180607, end: 20181211
  8. LERCANIDIPINE [Concomitant]
     Active Substance: LERCANIDIPINE
     Indication: PRODUCT USED FOR UNKNOWN INDICATION
     Dosage: 10 MG, QD
     Route: 065
  9. INCB018424 [Suspect]
     Active Substance: RUXOLITINIB
     Dosage: 30 MG, QD
     Route: 048
     Dates: start: 20180129, end: 20180211
  10. INCB018424 [Suspect]
     Active Substance: RUXOLITINIB
     Dosage: 30 MG, QD
     Route: 048
     Dates: start: 20180212, end: 20181017

REACTIONS (18)
  - Hydronephrosis [Recovered/Resolved]
  - Infection [Recovered/Resolved]
  - Platelet count decreased [Unknown]
  - Protein total decreased [Unknown]
  - Urosepsis [Recovered/Resolved]
  - Device occlusion [Recovered/Resolved]
  - Blood calcium decreased [Unknown]
  - Atrial fibrillation [Recovered/Resolved]
  - Blood creatinine increased [Unknown]
  - Pelvi-ureteric obstruction [Recovered/Resolved]
  - Blood lactate dehydrogenase increased [Unknown]
  - Haematocrit decreased [Unknown]
  - Urinary tract infection [Recovered/Resolved]
  - Loss of consciousness [Recovered/Resolved]
  - Splenic artery aneurysm [Recovered/Resolved]
  - Splenic haemorrhage [Recovered/Resolved]
  - Blood bilirubin decreased [Unknown]
  - Red blood cell count decreased [Unknown]

NARRATIVE: CASE EVENT DATE: 20180625
